FAERS Safety Report 14851211 (Version 2)
Quarter: 2018Q2

REPORT INFORMATION
  Report Type: Report from Study
  Country: US (occurrence: US)
  Receive Date: 20180507
  Receipt Date: 20180523
  Transmission Date: 20180711
  Serious: Yes (Other)
  Sender: FDA-Public Use
  Company Number: US-AMGEN-USASL2018059456

PATIENT
  Age: 66 Year
  Sex: Female

DRUGS (3)
  1. REPATHA [Suspect]
     Active Substance: EVOLOCUMAB
     Indication: HYPERCHOLESTEROLAEMIA
  2. REPATHA [Suspect]
     Active Substance: EVOLOCUMAB
     Indication: BLOOD CHOLESTEROL INCREASED
  3. REPATHA [Suspect]
     Active Substance: EVOLOCUMAB
     Indication: BLOOD CHOLESTEROL ABNORMAL
     Dosage: 140 MG, Q2WK
     Route: 065
     Dates: start: 20180413, end: 20180427

REACTIONS (15)
  - Epistaxis [Unknown]
  - Arthropathy [Unknown]
  - Headache [Unknown]
  - Dyspnoea [Unknown]
  - Insomnia [Unknown]
  - Hypersensitivity [Unknown]
  - Atrial fibrillation [Unknown]
  - Arthralgia [Not Recovered/Not Resolved]
  - Skin ulcer [Not Recovered/Not Resolved]
  - Blister [Not Recovered/Not Resolved]
  - Fibromyalgia [Recovering/Resolving]
  - Influenza like illness [Unknown]
  - Spinal pain [Unknown]
  - Injection site bruising [Unknown]
  - Gastrooesophageal reflux disease [Unknown]
